FAERS Safety Report 11026555 (Version 1)
Quarter: 2015Q2

REPORT INFORMATION
  Report Type: Spontaneous
  Country: IN (occurrence: IN)
  Receive Date: 20150414
  Receipt Date: 20150414
  Transmission Date: 20150821
  Serious: Yes (Hospitalization, Other)
  Sender: FDA-Public Use
  Company Number: IN-WATSON-2015-07266

PATIENT
  Age: 55 Year
  Sex: Female

DRUGS (1)
  1. NANDROLONE DECANOATE (WATSON LABORATORIES) [Suspect]
     Active Substance: NANDROLONE DECANOATE
     Indication: INTENTIONAL PRODUCT MISUSE
     Dosage: 100 MG, UNKNOWN
     Route: 030

REACTIONS (14)
  - Irritability [Unknown]
  - Hirsutism [Not Recovered/Not Resolved]
  - Androgenetic alopecia [Not Recovered/Not Resolved]
  - Intentional product misuse [Unknown]
  - Dysphonia [Unknown]
  - Hypertension [Unknown]
  - Muscle hypertrophy [Not Recovered/Not Resolved]
  - Dissociative disorder [Recovered/Resolved]
  - Insomnia [Recovered/Resolved]
  - Agitation [Recovered/Resolved]
  - Anxiety [Unknown]
  - Drug abuse [Unknown]
  - Drug dependence [Recovered/Resolved]
  - Rash [Unknown]
